FAERS Safety Report 11029649 (Version 1)
Quarter: 2015Q2

REPORT INFORMATION
  Report Type: Spontaneous
  Country: US (occurrence: None)
  Receive Date: 20150413
  Receipt Date: 20150413
  Transmission Date: 20150821
  Serious: No
  Sender: FDA-Public Use
  Company Number: None

PATIENT
  Age: 22 Year
  Sex: Female
  Weight: 117.94 kg

DRUGS (14)
  1. SUMBICORT [Concomitant]
  2. NEXPLANON [Concomitant]
     Active Substance: ETONOGESTREL
  3. CLARITIN-D 12 HOUR [Concomitant]
     Active Substance: LORATADINE\PSEUDOEPHEDRINE SULFATE
  4. NASACORT [Concomitant]
     Active Substance: TRIAMCINOLONE ACETONIDE
  5. OPTICHAMBER [Concomitant]
  6. ALBUTEROL. [Concomitant]
     Active Substance: ALBUTEROL
  7. LATUDA [Suspect]
     Active Substance: LURASIDONE HYDROCHLORIDE
     Indication: PARANOIA
     Dosage: TAKEN BY MOUTH
     Dates: start: 20150309, end: 20150410
  8. AQ [Concomitant]
  9. DEPO-PROVERA [Concomitant]
     Active Substance: MEDROXYPROGESTERONE ACETATE
  10. DIPHENHYDRAMINE HCI [Concomitant]
  11. ZANTAC [Concomitant]
     Active Substance: RANITIDINE HYDROCHLORIDE
  12. LATUDA [Concomitant]
     Active Substance: LURASIDONE HYDROCHLORIDE
  13. MULTI-VIT FOR HER [Concomitant]
  14. EQUATE [Concomitant]
     Active Substance: UNSPECIFIED INGREDIENT

REACTIONS (4)
  - Restlessness [None]
  - Palpitations [None]
  - Insomnia [None]
  - Respiratory rate increased [None]

NARRATIVE: CASE EVENT DATE: 20150405
